FAERS Safety Report 8080185-9 (Version None)
Quarter: 2012Q1

REPORT INFORMATION
  Report Type: 
  Country: None (occurrence: None)
  Receive Date: 20120130
  Receipt Date: 20120120
  Transmission Date: 20120608
  Serious: Yes (Other)
  Sender: FDA-Public Use
  Company Number: US-BAYER-201038151NA

PATIENT
  Age: 33 Year
  Sex: Female
  Weight: 58.957 kg

DRUGS (7)
  1. NSAID'S [Concomitant]
     Indication: PRODUCT USED FOR UNKNOWN INDICATION
  2. ASPIRIN [Concomitant]
     Indication: PRODUCT USED FOR UNKNOWN INDICATION
     Dosage: 325 MG, UNK
     Route: 048
  3. DROSPIRENONE AND ETHINYL ESTRADIOL [Suspect]
     Indication: ACNE
  4. YAZ [Suspect]
     Indication: ACNE
     Dosage: 1 DF, QD
     Dates: start: 20080808, end: 20090919
  5. YASMIN [Suspect]
     Indication: ACNE
  6. MOTRIN [Concomitant]
     Indication: PRODUCT USED FOR UNKNOWN INDICATION
  7. IRON [Concomitant]
     Indication: BLOOD IRON DECREASED
     Dosage: 325 MG, QD
     Route: 048

REACTIONS (3)
  - DEEP VEIN THROMBOSIS [None]
  - INJURY [None]
  - THROMBOSIS [None]
